FAERS Safety Report 17190296 (Version 1)
Quarter: 2019Q4

REPORT INFORMATION
  Report Type: Spontaneous
  Country: SE (occurrence: SE)
  Receive Date: 20191223
  Receipt Date: 20191223
  Transmission Date: 20200122
  Serious: Yes (Hospitalization)
  Sender: FDA-Public Use
  Company Number: SE-TEVA-2019-SE-1155600

PATIENT
  Sex: Female

DRUGS (4)
  1. VENLAFAXINE [Suspect]
     Active Substance: VENLAFAXINE HYDROCHLORIDE
     Dosage: 750 MG
     Route: 048
     Dates: start: 20180721, end: 20180721
  2. ALPRAZOLAM. [Suspect]
     Active Substance: ALPRAZOLAM
     Dosage: 7.5 MG
     Route: 048
     Dates: start: 20180721, end: 20180721
  3. PROPAVAN [Suspect]
     Active Substance: PROPIOMAZINE
     Dosage: 10 PROPAVAN
     Route: 048
     Dates: start: 20180721, end: 20180721
  4. STESOLID [Suspect]
     Active Substance: DIAZEPAM
     Dosage: 75 MG
     Route: 048
     Dates: start: 20180721, end: 20180721

REACTIONS (3)
  - Intentional self-injury [Unknown]
  - Intentional overdose [Unknown]
  - Depressed level of consciousness [Unknown]

NARRATIVE: CASE EVENT DATE: 20180721
